FAERS Safety Report 21221661 (Version 6)
Quarter: 2025Q3

REPORT INFORMATION
  Report Type: Spontaneous
  Country: US (occurrence: US)
  Receive Date: 20220817
  Receipt Date: 20250813
  Transmission Date: 20251021
  Serious: Yes (Other)
  Sender: SANOFI AVENTIS
  Company Number: US-SA-SAC20220816001042

PATIENT
  Age: 59 Year
  Sex: Male
  Weight: 61 kg

DRUGS (8)
  1. DUPIXENT [Suspect]
     Active Substance: DUPILUMAB
     Indication: Dermatitis atopic
     Dosage: 300 MG, QOW
     Route: 058
     Dates: start: 20220727, end: 202412
  2. DUPIXENT [Suspect]
     Active Substance: DUPILUMAB
     Dosage: 300 MG, QOW
     Route: 058
     Dates: start: 202502
  3. TAMSULOSIN HYDROCHLORIDE [Concomitant]
     Active Substance: TAMSULOSIN HYDROCHLORIDE
  4. LISINOPRIL [Concomitant]
     Active Substance: LISINOPRIL
  5. ALLEGRA ALLERGY [Concomitant]
     Active Substance: FEXOFENADINE HYDROCHLORIDE
  6. HYDROCORTISONE [Concomitant]
     Active Substance: HYDROCORTISONE
  7. THERATEARS [Concomitant]
     Active Substance: CARBOXYMETHYLCELLULOSE SODIUM
  8. VITAMINS NOS [Concomitant]
     Active Substance: VITAMINS

REACTIONS (18)
  - Keratoconus [Recovered/Resolved]
  - Cataract [Unknown]
  - Hyperhidrosis [Unknown]
  - Cold sweat [Unknown]
  - Paraesthesia [Unknown]
  - Visual impairment [Unknown]
  - Restlessness [Unknown]
  - Dry skin [Unknown]
  - Foreign body sensation in eyes [Unknown]
  - Sleep disorder due to a general medical condition [Unknown]
  - Rebound atopic dermatitis [Unknown]
  - Myopia [Recovered/Resolved]
  - Hypermetropia [Recovered/Resolved]
  - Astigmatism [Recovered/Resolved]
  - Vision blurred [Recovered/Resolved]
  - Ocular hyperaemia [Unknown]
  - Dry eye [Recovered/Resolved]
  - Dermatitis atopic [Recovered/Resolved]

NARRATIVE: CASE EVENT DATE: 20220801
